FAERS Safety Report 11264518 (Version 1)
Quarter: 2015Q3

REPORT INFORMATION
  Report Type: Spontaneous
  Country: GB (occurrence: GB)
  Receive Date: 20150713
  Receipt Date: 20150713
  Transmission Date: 20151125
  Serious: Yes (Other)
  Sender: FDA-Public Use
  Company Number: GB-ACCORD-031877

PATIENT
  Age: 20 Day

DRUGS (3)
  1. LORAZEPAM. [Suspect]
     Active Substance: LORAZEPAM
     Indication: AGITATION
     Route: 063
     Dates: start: 20150602
  2. ARIPIPRAZOLE. [Concomitant]
     Active Substance: ARIPIPRAZOLE
     Indication: BIPOLAR DISORDER
     Route: 063
     Dates: start: 20150602
  3. SERTRALINE [Suspect]
     Active Substance: SERTRALINE HYDROCHLORIDE
     Indication: BIPOLAR DISORDER
     Route: 063
     Dates: start: 20150602

REACTIONS (2)
  - Exposure during breast feeding [Unknown]
  - Jaundice neonatal [Not Recovered/Not Resolved]

NARRATIVE: CASE EVENT DATE: 20150616
